FAERS Safety Report 7510985-2 (Version None)
Quarter: 2011Q2

REPORT INFORMATION
  Report Type: 
  Country: None (occurrence: None)
  Receive Date: 20110531
  Receipt Date: 20110527
  Transmission Date: 20111010
  Serious: No
  Sender: FDA-Public Use
  Company Number: US-PFIZER INC-2010102263

PATIENT
  Sex: Male
  Weight: 88 kg

DRUGS (15)
  1. VERAPAMIL [Concomitant]
     Indication: HYPERTENSION
     Dosage: 120 MG, DAILY
  2. MOBIC [Concomitant]
     Dosage: 15 MG, UNK
  3. WARFARIN SODIUM [Concomitant]
     Indication: HYPERTENSION
  4. NEURONTIN [Concomitant]
     Indication: PERIPHERAL NERVE INJURY
     Dosage: 100 MG, 2X/DAY
  5. ZOLOFT [Concomitant]
     Indication: DEPRESSION
     Dosage: 100 MG DAILY
  6. CHLORTHALIDONE [Concomitant]
     Dosage: 25 MG, 2X/DAY
  7. NITROSTAT [Suspect]
     Indication: DYSPNOEA
  8. OMEPRAZOLE [Concomitant]
     Indication: GASTROOESOPHAGEAL REFLUX DISEASE
     Dosage: 20 MG, DAILY
  9. ATENOLOL [Concomitant]
     Indication: HYPERTENSION
     Dosage: 50 MG, 2X/DAY
  10. NITROSTAT [Suspect]
     Indication: CHEST PAIN
  11. PRAVASTATIN [Concomitant]
     Indication: BLOOD CHOLESTEROL INCREASED
     Dosage: 40 MG, DAILY
  12. KLOR-CON [Concomitant]
     Indication: ELECTROLYTE IMBALANCE
     Dosage: 10 MG DAILY
  13. RAMIPRIL [Concomitant]
     Indication: HYPERTENSION
     Dosage: 2.5 MG, DAILY
  14. NITROSTAT [Suspect]
     Indication: ATRIAL FIBRILLATION
     Dosage: 0.4 MG, AS NEEDED
     Route: 048
     Dates: start: 20091201
  15. WARFARIN SODIUM [Concomitant]
     Indication: THROMBOSIS PROPHYLAXIS
     Dosage: 3 MG, DAILY

REACTIONS (2)
  - DRUG INEFFECTIVE [None]
  - DRUG EFFECT DECREASED [None]
